FAERS Safety Report 11199752 (Version 1)
Quarter: 2015Q2

REPORT INFORMATION
  Report Type: Spontaneous
  Country: FR (occurrence: FR)
  Receive Date: 20150618
  Receipt Date: 20150618
  Transmission Date: 20150821
  Serious: Yes (Death, Life-Threatening, Hospitalization)
  Sender: FDA-Public Use
  Company Number: FR-HORIZON-BUP-0010-2015

PATIENT
  Age: 63 Year
  Sex: Female

DRUGS (15)
  1. AMMONAPS POWDER [Suspect]
     Active Substance: SODIUM PHENYLBUTYRATE
     Indication: AMMONIA INCREASED
     Route: 048
     Dates: end: 201401
  2. APROVEL [Concomitant]
     Active Substance: IRBESARTAN
     Dosage: 75 MG TABLET
  3. SODIUM BENZOATE [Concomitant]
     Active Substance: SODIUM BENZOATE
  4. IMUREL [Suspect]
     Active Substance: AZATHIOPRINE SODIUM
  5. INEXIUM [Suspect]
     Active Substance: ESOMEPRAZOLE
     Dates: end: 201401
  6. ARGININE [Concomitant]
     Active Substance: ARGININE
  7. NOVORAPID [Concomitant]
     Active Substance: INSULIN ASPART
  8. DUPHALAC [Concomitant]
     Active Substance: LACTULOSE
  9. LEVOCARNIL [Concomitant]
     Active Substance: LEVOCARNITINE
  10. LANTUS [Concomitant]
     Active Substance: INSULIN GLARGINE
  11. LASILIX FAIBLE [Concomitant]
     Active Substance: FUROSEMIDE
     Dosage: 20 MG TABLET
  12. ALDACTONE [Concomitant]
     Active Substance: SPIRONOLACTONE
     Dosage: 50 MG TABLET
  13. DIFFU K [Concomitant]
     Active Substance: POTASSIUM CHLORIDE
  14. URSOLVAN [Concomitant]
     Active Substance: URSODIOL
     Dosage: 200 MG CAPSULE
  15. CORTANCYL [Suspect]
     Active Substance: PREDNISONE
     Dosage: DOSE REDUCED TO 10 MG
     Dates: end: 201401

REACTIONS (5)
  - Leukopenia [Not Recovered/Not Resolved]
  - Septic shock [Fatal]
  - Sepsis [Fatal]
  - Multi-organ failure [Fatal]
  - Neutropenia [Not Recovered/Not Resolved]

NARRATIVE: CASE EVENT DATE: 20140103
